FAERS Safety Report 6161131-1 (Version None)
Quarter: 2009Q2

REPORT INFORMATION
  Report Type: 
  Country: None (occurrence: None)
  Receive Date: 20090417
  Receipt Date: 20090417
  Transmission Date: 20091009
  Serious: Yes (Other)
  Sender: FDA-Public Use
  Company Number: None

PATIENT
  Age: 59 Year
  Sex: Female
  Weight: 108.8633 kg

DRUGS (2)
  1. ULTRASE MT20 [Suspect]
     Indication: PANCREATIC ENZYME ABNORMALITY
     Dosage: 20 MG EC SCA 1 CAP PO W/ SNACK MEALS MOUTH
     Route: 048
     Dates: start: 20090329, end: 20090402
  2. ULTRASE MT20 [Suspect]
     Dosage: SAMPLE EC SCA 1 CAP PO W/SNACK MEALS MOUTH
     Route: 048

REACTIONS (4)
  - DIZZINESS [None]
  - GLOSSODYNIA [None]
  - RASH [None]
  - SWOLLEN TONGUE [None]
